FAERS Safety Report 4989481-2 (Version None)
Quarter: 2006Q2

REPORT INFORMATION
  Report Type: 
  Country: None (occurrence: None)
  Receive Date: 20060425
  Receipt Date: 20060412
  Transmission Date: 20061013
  Serious: Yes (Other)
  Sender: FDA-Public Use
  Company Number: 2006US-02069

PATIENT
  Age: 14 Year
  Sex: Female

DRUGS (1)
  1. ISOTRETINOIN [Suspect]
     Dosage: 20 MG, BID, ORAL
     Route: 048
     Dates: start: 20051215, end: 20060315

REACTIONS (1)
  - WHITE BLOOD CELL COUNT DECREASED [None]
